FAERS Safety Report 5861447-X (Version None)
Quarter: 2008Q3

REPORT INFORMATION
  Report Type: 
  Country: None (occurrence: None)
  Receive Date: 20080827
  Receipt Date: 20080515
  Transmission Date: 20090109
  Serious: No
  Sender: FDA-Public Use
  Company Number: US-ABBOTT-08P-163-0451975-00

PATIENT
  Sex: Male
  Weight: 104 kg

DRUGS (8)
  1. COATED PDS [Suspect]
     Indication: BLOOD CHOLESTEROL INCREASED
     Route: 048
  2. COATED PDS [Suspect]
     Route: 048
  3. WARFARIN SODIUM [Concomitant]
     Indication: PULMONARY EMBOLISM
     Route: 048
  4. WARFARIN SODIUM [Concomitant]
     Route: 048
     Dates: start: 19950101
  5. CELECOXIB [Concomitant]
     Indication: PAIN
     Route: 048
     Dates: start: 20050101
  6. ULTRACET [Concomitant]
     Indication: PAIN
     Route: 048
     Dates: start: 20080101
  7. TIMOLOL [Concomitant]
     Indication: GLAUCOMA
     Dosage: .5%-1 DROP IN EACH EYE 2 TIMES DAILY
     Route: 047
  8. PILOCARPINE [Concomitant]
     Indication: GLAUCOMA
     Dosage: 1%-1 DROP IN EACH EYE 2 TIMES DAILY
     Route: 047

REACTIONS (1)
  - FLUSHING [None]
